FAERS Safety Report 11279201 (Version 1)
Quarter: 2015Q3

REPORT INFORMATION
  Report Type: Spontaneous
  Country: US (occurrence: None)
  Receive Date: 20150716
  Receipt Date: 20150716
  Transmission Date: 20151125
  Serious: Yes (Other)
  Sender: FDA-Public Use
  Company Number: None

PATIENT
  Age: 21 Year
  Sex: Female

DRUGS (1)
  1. HUMIRA [Suspect]
     Active Substance: ADALIMUMAB
     Indication: CROHN^S DISEASE
     Dosage: 4 DAY 1, 2 ON DAY 15, THEN 40 MG
     Route: 058
     Dates: start: 20150630

REACTIONS (1)
  - Injection site pain [None]

NARRATIVE: CASE EVENT DATE: 20150630
